FAERS Safety Report 4602136-9 (Version None)
Quarter: 2005Q1

REPORT INFORMATION
  Report Type: 
  Country: None (occurrence: None)
  Receive Date: 20050207
  Receipt Date: 20040325
  Transmission Date: 20050727
  Serious: Yes (Hospitalization)
  Sender: FDA-Public Use
  Company Number: HQWYE191629MAR04

PATIENT
  Age: 41 Year
  Sex: Male
  Weight: 99 kg

DRUGS (3)
  1. REFACTO [Suspect]
     Indication: FACTOR VIII DEFICIENCY
     Dosage: 5000 IU BOLUS, INTRAVENOUS; SEE IMAGE
     Route: 042
     Dates: start: 20040323, end: 20040323
  2. REFACTO [Suspect]
     Indication: FACTOR VIII DEFICIENCY
     Dosage: 5000 IU BOLUS, INTRAVENOUS; SEE IMAGE
     Route: 042
     Dates: start: 20040323, end: 20040326
  3. REFACTO [Suspect]
     Indication: FACTOR VIII DEFICIENCY
     Dosage: 5000 IU BOLUS, INTRAVENOUS; SEE IMAGE
     Route: 042
     Dates: start: 20040326

REACTIONS (4)
  - CATHETER RELATED COMPLICATION [None]
  - DYSPNOEA [None]
  - PYREXIA [None]
  - TACHYCARDIA [None]
